FAERS Safety Report 5672537-9 (Version None)
Quarter: 2008Q1

REPORT INFORMATION
  Report Type: 
  Country: None (occurrence: None)
  Receive Date: 20080317
  Receipt Date: 20080304
  Transmission Date: 20080703
  Serious: Yes (Hospitalization)
  Sender: FDA-Public Use
  Company Number: 2008-173090-NL

PATIENT
  Sex: Female

DRUGS (1)
  1. NUVARING [Suspect]
     Indication: CONTRACEPTION
     Dosage: VAGINAL 3 WKS IN, 1 WK OUT
     Route: 067
     Dates: start: 20070101, end: 20070101

REACTIONS (1)
  - INTRACRANIAL ANEURYSM [None]
